FAERS Safety Report 8489514-5 (Version None)
Quarter: 2012Q2

REPORT INFORMATION
  Report Type: 
  Country: None (occurrence: None)
  Receive Date: 20120628
  Receipt Date: 20120628
  Transmission Date: 20120825
  Serious: Yes (Other)
  Sender: FDA-Public Use
  Company Number: None

PATIENT
  Sex: Male

DRUGS (9)
  1. LEXAPRO [Concomitant]
  2. GEODON [Concomitant]
  3. LENZIPRIL [Concomitant]
  4. OXYCODONE HCL [Concomitant]
  5. VALIUM [Concomitant]
  6. NEURTON [Concomitant]
  7. MORPHINE [Concomitant]
  8. ANDROGEL [Suspect]
     Indication: BLOOD TESTOSTERONE DECREASED
     Dosage: 1.62% TWO PUMPS A DAY TOP
     Route: 061
  9. BACLOIPAN [Concomitant]

REACTIONS (4)
  - AGITATION [None]
  - ARTHRALGIA [None]
  - OEDEMA PERIPHERAL [None]
  - LIMB DEFORMITY [None]
